FAERS Safety Report 7296294-8 (Version None)
Quarter: 2011Q1

REPORT INFORMATION
  Report Type: 
  Country: None (occurrence: None)
  Receive Date: 20110211
  Receipt Date: 20110211
  Transmission Date: 20110831
  Serious: No
  Sender: FDA-Public Use
  Company Number: None

PATIENT
  Sex: Female

DRUGS (1)
  1. SAPHRIS [Suspect]

REACTIONS (4)
  - MOUTH HAEMORRHAGE [None]
  - MUCOSAL EXCORIATION [None]
  - GLOSSODYNIA [None]
  - TONGUE BLISTERING [None]
